FAERS Safety Report 8795968 (Version 1)
Quarter: 2012Q4

REPORT INFORMATION
  Report Type: 
  Country: US (occurrence: US)
  Receive Date: 20120920
  Receipt Date: 20120920
  Transmission Date: 20130627
  Serious: Yes (Other)
  Sender: FDA-Public Use
  Company Number: US-BAYER-2012-097644

PATIENT
  Age: 63 Year
  Sex: Female
  Weight: 66 kg

DRUGS (6)
  1. BAYER ADVANCED ASPIRIN EXTRA STRENGTH [Suspect]
     Indication: ARTHRITIS
     Dosage: 1 DF, QD
     Route: 048
     Dates: start: 20120911, end: 20120911
  2. BAYER ADVANCED ASPIRIN EXTRA STRENGTH [Suspect]
     Indication: FIBROMYALGIA
  3. PREDNISONE [Concomitant]
  4. MINOCIN [Concomitant]
  5. CODEINE [Concomitant]
  6. MULTI-VITAMIN [Concomitant]

REACTIONS (2)
  - Choking [Recovered/Resolved]
  - Dysphagia [Recovered/Resolved]
